FAERS Safety Report 8584287 (Version 3)
Quarter: 2014Q2

REPORT INFORMATION
  Report Type: Spontaneous
  Country: US (occurrence: US)
  Receive Date: 20120529
  Receipt Date: 20140416
  Transmission Date: 20141212
  Serious: Yes (Hospitalization)
  Sender: FDA-Public Use
  Company Number: US-ASTRAZENECA-2012SE13027

PATIENT
  Age: 58 Year
  Sex: Female
  Weight: 54.4 kg

DRUGS (2)
  1. SYMBICORT PMDI [Suspect]
     Indication: CHRONIC OBSTRUCTIVE PULMONARY DISEASE
     Dosage: 160/4.5, 2 PUFFS BID
     Route: 055
     Dates: start: 2009, end: 201404
  2. ALBUTEROL [Concomitant]
     Indication: RESPIRATORY DISORDER
     Dosage: 2 PUFFS EVERY 4 TO 6 PRN
     Route: 055

REACTIONS (3)
  - Lung infection [Unknown]
  - Dyspnoea [Unknown]
  - Drug dose omission [Not Recovered/Not Resolved]
